FAERS Safety Report 9884804 (Version 1)
Quarter: 2014Q1

REPORT INFORMATION
  Report Type: Spontaneous
  Country: PH (occurrence: PH)
  Receive Date: 20140206
  Receipt Date: 20140206
  Transmission Date: 20141002
  Serious: Yes (Death, Other)
  Sender: FDA-Public Use
  Company Number: PH-009507513-1402PHL001762

PATIENT
  Age: 72 Year
  Sex: Female

DRUGS (5)
  1. COZAAR [Suspect]
     Dosage: 1 DF, QD
     Route: 048
     Dates: start: 20120806
  2. JANUMET [Suspect]
     Dosage: UNK, QD
     Route: 048
  3. VITAMIN B COMPLEX [Concomitant]
  4. ASCORBIC ACID [Concomitant]
  5. GODEX CAP [Concomitant]

REACTIONS (1)
  - Hepatic cancer [Fatal]
